FAERS Safety Report 17295504 (Version 2)
Quarter: 2020Q3

REPORT INFORMATION
  Report Type: Spontaneous
  Country: US (occurrence: US)
  Receive Date: 20200121
  Receipt Date: 20200717
  Transmission Date: 20201102
  Serious: Yes (Hospitalization, Other)
  Sender: FDA-Public Use
  Company Number: US-VERTEX PHARMACEUTICALS-2020-000693

PATIENT
  Age: 19 Year
  Sex: Female

DRUGS (38)
  1. AZITHROMYCIN ANHYDROUS. [Concomitant]
     Active Substance: AZITHROMYCIN ANHYDROUS
  2. CREON [Concomitant]
     Active Substance: PANCRELIPASE AMYLASE\PANCRELIPASE LIPASE\PANCRELIPASE PROTEASE
  3. BOOST [Concomitant]
     Active Substance: DIETARY SUPPLEMENT
  4. DICLOFENAC [Concomitant]
     Active Substance: DICLOFENAC
  5. OMEPRAZOLE. [Concomitant]
     Active Substance: OMEPRAZOLE
  6. FLOVENT [Concomitant]
     Active Substance: FLUTICASONE PROPIONATE
  7. TRIKAFTA [Suspect]
     Active Substance: ELEXACAFTOR\IVACAFTOR\TEZACAFTOR
     Dosage: TWO TRIPLE THERAPY TABLETS IN THE MORNING
     Route: 048
     Dates: start: 2020, end: 2020
  8. TRIKAFTA [Suspect]
     Active Substance: ELEXACAFTOR\IVACAFTOR\TEZACAFTOR
     Dosage: TWO TRIPLE THERAPY TABLETS IN THE MORNING
     Route: 048
     Dates: start: 202006
  9. QUETIAPINE FUMARATE. [Concomitant]
     Active Substance: QUETIAPINE FUMARATE
     Dosage: 100 MG, AT BEDTIME
     Dates: start: 2020
  10. TRIKAFTA [Suspect]
     Active Substance: ELEXACAFTOR\IVACAFTOR\TEZACAFTOR
     Indication: CYSTIC FIBROSIS
     Dosage: 2 TABLETS AM; 1 TABLET PM
     Route: 048
     Dates: start: 201911, end: 201912
  11. QUETIAPINE FUMARATE. [Concomitant]
     Active Substance: QUETIAPINE FUMARATE
     Indication: INSOMNIA
     Dosage: 100 MG AT BEDTIME
  12. TRIKAFTA [Suspect]
     Active Substance: ELEXACAFTOR\IVACAFTOR\TEZACAFTOR
     Dosage: ONE IVACAFTOR 150 MG TABLET IN AM AND TWO TRIPLE THERAPY TABLETS IN PM
     Route: 048
     Dates: start: 202003, end: 2020
  13. BUPROPION. [Suspect]
     Active Substance: BUPROPION
     Indication: DEPRESSED MOOD
     Dosage: 150 MG, QD
     Route: 065
     Dates: start: 2020, end: 2020
  14. CAYSTON [Concomitant]
     Active Substance: AZTREONAM
  15. CETIRIZINE [Concomitant]
     Active Substance: CETIRIZINE HYDROCHLORIDE
  16. COLISTIMETHATE [COLISTIMETHATE SODIUM] [Concomitant]
     Active Substance: COLISTIMETHATE SODIUM
  17. DEXTROAMPHETAMINE [DEXAMFETAMINE] [Concomitant]
     Active Substance: DEXTROAMPHETAMINE
  18. DULCOLAX (BISACODYL) [Concomitant]
     Active Substance: BISACODYL
  19. ERGOCALCIFEROL. [Concomitant]
     Active Substance: ERGOCALCIFEROL
  20. SYMBICORT [Concomitant]
     Active Substance: BUDESONIDE\FORMOTEROL FUMARATE DIHYDRATE
  21. SERTRALINE [Concomitant]
     Active Substance: SERTRALINE HYDROCHLORIDE
     Indication: DEPRESSED MOOD
     Dosage: 25 MG, QD
  22. QUETIAPINE FUMARATE. [Concomitant]
     Active Substance: QUETIAPINE FUMARATE
     Dosage: 75 MG, AT BEDTIME
     Dates: start: 2020
  23. CLONAZEPAM. [Concomitant]
     Active Substance: CLONAZEPAM
     Indication: ANXIETY
     Dosage: 0.5 MG, BID, PRN
  24. TRIKAFTA [Suspect]
     Active Substance: ELEXACAFTOR\IVACAFTOR\TEZACAFTOR
     Dosage: ONE AND A HALF TRIPLE THERAPY TABLETS WITH ONE AND A HALF IVACAFTOR 150 MG TABLETS IN AM
     Route: 048
     Dates: start: 2020, end: 2020
  25. PULMOZYME [Concomitant]
     Active Substance: DORNASE ALFA
  26. CLONAZEPAM. [Concomitant]
     Active Substance: CLONAZEPAM
     Indication: PANIC ATTACK
     Dosage: 0.5 MG, TID
     Dates: start: 2020
  27. TRIKAFTA [Suspect]
     Active Substance: ELEXACAFTOR\IVACAFTOR\TEZACAFTOR
     Dosage: ONE TRIPLE THERAPY TABLET
     Route: 048
     Dates: start: 202001, end: 2020
  28. BUPROPION. [Suspect]
     Active Substance: BUPROPION
     Indication: ANXIETY
  29. FISH OIL [Concomitant]
     Active Substance: FISH OIL
  30. ONDASETRON [ONDANSETRON] [Concomitant]
  31. PREDNISONE. [Concomitant]
     Active Substance: PREDNISONE
  32. SENNA [SENNA ALEXANDRINA] [Concomitant]
     Active Substance: SENNA LEAF
  33. TOBI PODHALER [Concomitant]
     Active Substance: TOBRAMYCIN
  34. SERTRALINE [Concomitant]
     Active Substance: SERTRALINE HYDROCHLORIDE
     Dosage: 150 UNK
     Dates: start: 2020
  35. DEKASOFT [Concomitant]
  36. FLUTICASONE. [Concomitant]
     Active Substance: FLUTICASONE
  37. SERTRALINE [Concomitant]
     Active Substance: SERTRALINE HYDROCHLORIDE
     Indication: ANXIETY
     Dosage: 50 UNK
     Dates: start: 201901
  38. SERTRALINE [Concomitant]
     Active Substance: SERTRALINE HYDROCHLORIDE
     Dosage: 75 MG, QD
     Dates: start: 2020

REACTIONS (8)
  - Anxiety [Not Recovered/Not Resolved]
  - Suicidal ideation [Unknown]
  - Hypnopompic hallucination [Not Recovered/Not Resolved]
  - Hypoaesthesia [Unknown]
  - Panic attack [Recovered/Resolved]
  - Infective pulmonary exacerbation of cystic fibrosis [Unknown]
  - Sleep paralysis [Not Recovered/Not Resolved]
  - Depression [Not Recovered/Not Resolved]

NARRATIVE: CASE EVENT DATE: 2019
